FAERS Safety Report 13732393 (Version 2)
Quarter: 2018Q1

REPORT INFORMATION
  Report Type: Spontaneous
  Country: US (occurrence: US)
  Receive Date: 20170707
  Receipt Date: 20180105
  Transmission Date: 20180508
  Serious: No
  Sender: FDA-Public Use
  Company Number: US-SA-2017SA103854

PATIENT
  Age: 49 Year
  Sex: Female

DRUGS (2)
  1. DUPIXENT [Suspect]
     Active Substance: DUPILUMAB
     Indication: DERMATITIS ATOPIC
     Dosage: LOADING DOSE?UNDER THE SKIN ON DAY 1
     Route: 058
     Dates: start: 201705, end: 201705
  2. ZYRTEC [Concomitant]
     Active Substance: CETIRIZINE HYDROCHLORIDE
     Route: 065

REACTIONS (4)
  - Asthenia [Unknown]
  - Somnolence [Recovered/Resolved]
  - Lethargy [Unknown]
  - Throat tightness [Unknown]

NARRATIVE: CASE EVENT DATE: 2017
